FAERS Safety Report 20439448 (Version 1)
Quarter: 2022Q1

REPORT INFORMATION
  Report Type: Spontaneous
  Country: CA (occurrence: CA)
  Receive Date: 20220207
  Receipt Date: 20220207
  Transmission Date: 20220423
  Serious: Yes (Hospitalization, Other)
  Sender: FDA-Public Use
  Company Number: CA-LUPIN PHARMACEUTICALS INC.-2022-01475

PATIENT
  Age: 17 Year
  Sex: Female

DRUGS (1)
  1. TESTOSTERONE [Suspect]
     Active Substance: TESTOSTERONE
     Indication: Transgender hormonal therapy
     Dosage: 70 MG WEEKLY INJECTION (WITHHELD FOR 1 WEEK AND THEN CONTINUED AT REDUCED DOSE)
     Route: 058

REACTIONS (1)
  - Idiopathic intracranial hypertension [Recovered/Resolved]
